FAERS Safety Report 12095245 (Version 1)
Quarter: 2016Q1

REPORT INFORMATION
  Report Type: Report from Study
  Country: US (occurrence: US)
  Receive Date: 20160219
  Receipt Date: 20160219
  Transmission Date: 20160526
  Serious: Yes (Life-Threatening)
  Sender: FDA-Public Use
  Company Number: US-ASTRAZENECA-2016SE17435

PATIENT
  Age: 15070 Day
  Sex: Female
  Weight: 60.6 kg

DRUGS (2)
  1. TICAGRELOR [Suspect]
     Active Substance: TICAGRELOR
     Route: 048
     Dates: start: 20160209
  2. TICAGRELOR [Suspect]
     Active Substance: TICAGRELOR
     Route: 048
     Dates: start: 20160213, end: 20160213

REACTIONS (1)
  - Ovarian cyst ruptured [Unknown]

NARRATIVE: CASE EVENT DATE: 20160213
